FAERS Safety Report 6063302-1 (Version None)
Quarter: 2009Q1

REPORT INFORMATION
  Report Type: 
  Country: None (occurrence: None)
  Receive Date: 20090203
  Receipt Date: 20090127
  Transmission Date: 20090719
  Serious: Yes (Death)
  Sender: FDA-Public Use
  Company Number: US-CELGENEUS-163-21880-08100138

PATIENT
  Sex: Female

DRUGS (2)
  1. REVLIMID [Suspect]
     Indication: MULTIPLE MYELOMA
     Route: 048
     Dates: start: 20071201, end: 20080901
  2. REVLIMID [Suspect]
     Route: 048
     Dates: start: 20070510, end: 20070901

REACTIONS (10)
  - ANAEMIA [None]
  - ANOREXIA [None]
  - ASTHENIA [None]
  - BREATH SOUNDS ABNORMAL [None]
  - DEPRESSION [None]
  - FATIGUE [None]
  - MALAISE [None]
  - MULTIPLE MYELOMA [None]
  - PERFORMANCE STATUS DECREASED [None]
  - WEIGHT DECREASED [None]
